FAERS Safety Report 20994429 (Version 2)
Quarter: 2023Q4

REPORT INFORMATION
  Report Type: Report from Study
  Country: US (occurrence: US)
  Receive Date: 20220622
  Receipt Date: 20231005
  Transmission Date: 20240109
  Serious: Yes (Life-Threatening, Other)
  Sender: FDA-Public Use
  Company Number: US-RPC-1063-MS-001-1251006-20201125-0001SG

PATIENT
  Age: 49 Year
  Sex: Female
  Weight: 60 kg

DRUGS (13)
  1. ADVIL [Concomitant]
     Active Substance: IBUPROFEN
     Indication: Headache
     Route: 048
     Dates: start: 2014
  2. AMANTADINE [Concomitant]
     Active Substance: AMANTADINE
     Indication: Fatigue
     Route: 048
     Dates: start: 201912
  3. PROLIA [Concomitant]
     Active Substance: DENOSUMAB
     Indication: Osteoporosis
     Route: 058
     Dates: start: 201703
  4. ZYRTEC [Concomitant]
     Active Substance: CETIRIZINE HYDROCHLORIDE
     Indication: Seasonal allergy
     Route: 048
     Dates: start: 2010
  5. CONCERTA [Concomitant]
     Active Substance: METHYLPHENIDATE HYDROCHLORIDE
     Indication: Fatigue
     Route: 048
     Dates: start: 20200915
  6. CYANOCOBALAMIN [Concomitant]
     Active Substance: CYANOCOBALAMIN
     Indication: Supplementation therapy
     Route: 030
     Dates: start: 20160914
  7. FAMOTIDINE [Concomitant]
     Active Substance: FAMOTIDINE
     Indication: Gastrooesophageal reflux disease
     Route: 048
     Dates: start: 20200507
  8. GABAPENTIN [Concomitant]
     Active Substance: GABAPENTIN
     Indication: Neuropathy peripheral
     Route: 048
     Dates: start: 20180413
  9. LATANOPROST [Concomitant]
     Active Substance: LATANOPROST
     Indication: Product used for unknown indication
     Route: 031
     Dates: start: 20160922
  10. MIRALAX [Concomitant]
     Active Substance: POLYETHYLENE GLYCOL 3350
     Indication: Constipation
     Dosage: 1 CAPFUL
     Route: 048
     Dates: start: 20171103
  11. NITRO BID [Concomitant]
     Indication: Raynaud^s phenomenon
     Dosage: 1 UNITS NOT SPECIFIED
     Route: 061
     Dates: start: 20160311
  12. ONDANSETRON HYDROCHLORIDE [Concomitant]
     Active Substance: ONDANSETRON HYDROCHLORIDE
     Indication: Vertigo
     Route: 048
     Dates: start: 20200507
  13. VITAMIN D3 [Concomitant]
     Active Substance: CHOLECALCIFEROL
     Indication: Vitamin D deficiency
     Route: 048
     Dates: start: 20160526

REACTIONS (1)
  - Squamous cell carcinoma [Recovered/Resolved]

NARRATIVE: CASE EVENT DATE: 20201109
